FAERS Safety Report 16279645 (Version 1)
Quarter: 2019Q2

REPORT INFORMATION
  Report Type: Spontaneous
  Country: GB (occurrence: GB)
  Receive Date: 20190507
  Receipt Date: 20190507
  Transmission Date: 20190711
  Serious: Yes (Other)
  Sender: FDA-Public Use
  Company Number: GB-CELLTRION INC.-2019GB020117

PATIENT

DRUGS (6)
  1. RITUXIMAB (UNKNOWN) [Suspect]
     Active Substance: RITUXIMAB
     Dosage: 375 MG/M2, 2ND INFUSION
     Route: 065
  2. RITUXIMAB (UNKNOWN) [Suspect]
     Active Substance: RITUXIMAB
     Dosage: 375 MG/M2, 3RD INFUSION
     Route: 065
  3. MABTHERA [Concomitant]
     Active Substance: RITUXIMAB
     Indication: THROMBOTIC THROMBOCYTOPENIC PURPURA
     Dosage: UNK
     Route: 041
  4. OFATUMUMAB [Suspect]
     Active Substance: OFATUMUMAB
     Indication: SERUM SICKNESS
     Dosage: UNK
     Route: 041
  5. RITUXIMAB (UNKNOWN) [Suspect]
     Active Substance: RITUXIMAB
     Indication: THROMBOTIC THROMBOCYTOPENIC PURPURA
     Dosage: 375 MG/M2, 1ST INFUSION
     Route: 065
  6. RITUXIMAB (UNKNOWN) [Suspect]
     Active Substance: RITUXIMAB
     Dosage: 375 MG/M2, 4TH INFUSION
     Route: 065

REACTIONS (5)
  - Rash pruritic [Recovered/Resolved]
  - Serum sickness [Unknown]
  - Oropharyngeal pain [Recovered/Resolved]
  - Product use in unapproved indication [Unknown]
  - Off label use [Unknown]
